FAERS Safety Report 20893715 (Version 1)
Quarter: 2022Q2

REPORT INFORMATION
  Report Type: Spontaneous
  Country: FR (occurrence: FR)
  Receive Date: 20220531
  Receipt Date: 20220531
  Transmission Date: 20220721
  Serious: Yes (Other)
  Sender: FDA-Public Use
  Company Number: FR-Zentiva-2022-ZT-004034

PATIENT
  Age: 13 Year
  Sex: Male
  Weight: 38 kg

DRUGS (5)
  1. EBASTINE [Suspect]
     Active Substance: EBASTINE
     Indication: Nasopharyngitis
     Dosage: UNK
     Route: 048
     Dates: start: 20220505
  2. EFFERALGAN [Suspect]
     Active Substance: ACETAMINOPHEN
     Indication: Nasopharyngitis
     Dosage: 500 MILLIGRAM, PRN (AS NECESSARY)
     Route: 048
     Dates: start: 20220505
  3. MAXILASE [Suspect]
     Active Substance: PANCRELIPASE
     Indication: Nasopharyngitis
     Dosage: UNK
     Route: 048
     Dates: start: 20220505
  4. IBUPROFEN [Suspect]
     Active Substance: IBUPROFEN
     Indication: Nasopharyngitis
     Dosage: 200 MILLIGRAM, QD
     Route: 048
     Dates: start: 20220505
  5. BECLOMETHASONE DIPROPIONATE [Suspect]
     Active Substance: BECLOMETHASONE DIPROPIONATE
     Indication: Nasopharyngitis
     Dosage: 100 MICROGRAMS/DOSE
     Route: 045
     Dates: start: 20220505

REACTIONS (1)
  - Epistaxis [Not Recovered/Not Resolved]

NARRATIVE: CASE EVENT DATE: 20220505
